FAERS Safety Report 15434620 (Version 2)
Quarter: 2019Q3

REPORT INFORMATION
  Report Type: Report from Study
  Country: US (occurrence: US)
  Receive Date: 20180927
  Receipt Date: 20190711
  Transmission Date: 20191004
  Serious: Yes (Hospitalization)
  Sender: FDA-Public Use
  Company Number: US-JNJFOC-20180521029

PATIENT
  Age: 60 Year
  Sex: Female

DRUGS (1)
  1. IBRUTINIB [Suspect]
     Active Substance: IBRUTINIB
     Indication: CHRONIC LYMPHOCYTIC LEUKAEMIA
     Route: 048
     Dates: start: 20160308

REACTIONS (2)
  - Upper respiratory tract infection [Recovered/Resolved with Sequelae]
  - Asthma [Recovered/Resolved with Sequelae]

NARRATIVE: CASE EVENT DATE: 20180501
